FAERS Safety Report 4626729-8 (Version None)
Quarter: 2005Q2

REPORT INFORMATION
  Report Type: 
  Country: None (occurrence: None)
  Receive Date: 20050401
  Receipt Date: 20050401
  Transmission Date: 20051028
  Serious: No
  Sender: FDA-Public Use
  Company Number: None

PATIENT
  Sex: Female
  Weight: 48 kg

DRUGS (3)
  1. FLUOROURACIL [Suspect]
     Dates: start: 20050214
  2. CISPLATIN [Suspect]
  3. RADIOTHERAPY [Suspect]

REACTIONS (5)
  - CANDIDIASIS [None]
  - DEHYDRATION [None]
  - HYPONATRAEMIA [None]
  - MUCOSAL INFLAMMATION [None]
  - PAIN [None]
